FAERS Safety Report 16623140 (Version 7)
Quarter: 2020Q4

REPORT INFORMATION
  Report Type: Spontaneous
  Country: US (occurrence: US)
  Receive Date: 20190723
  Receipt Date: 20201022
  Transmission Date: 20210113
  Serious: Yes (Hospitalization, Other)
  Sender: FDA-Public Use
  Company Number: US-LEXICON PHARMACEUTICALS, INC-19-1606-00715

PATIENT
  Age: 73 Year
  Sex: Female

DRUGS (2)
  1. SANDOSTATIN [Concomitant]
     Active Substance: OCTREOTIDE ACETATE
  2. TELOTRISTAT ETHYL [Suspect]
     Active Substance: TELOTRISTAT ETHYL
     Indication: CARCINOID SYNDROME
     Route: 048
     Dates: start: 20190613

REACTIONS (19)
  - Chemotherapy [Not Recovered/Not Resolved]
  - Product dose omission issue [Recovered/Resolved]
  - Constipation [Not Recovered/Not Resolved]
  - Decreased appetite [Not Recovered/Not Resolved]
  - Rash pruritic [Recovered/Resolved]
  - Diarrhoea [Not Recovered/Not Resolved]
  - Gastroenteritis viral [Not Recovered/Not Resolved]
  - Flushing [Not Recovered/Not Resolved]
  - Serum serotonin increased [Unknown]
  - Ear infection [Unknown]
  - Cough [Unknown]
  - Dry mouth [Recovered/Resolved]
  - Pyrexia [Recovered/Resolved]
  - Neoplasm [Not Recovered/Not Resolved]
  - Night sweats [Not Recovered/Not Resolved]
  - Nausea [Recovered/Resolved]
  - Neoplasm progression [Not Recovered/Not Resolved]
  - Fatigue [Recovering/Resolving]
  - Tongue dysplasia [Recovered/Resolved]

NARRATIVE: CASE EVENT DATE: 20190925
